FAERS Safety Report 4415863-3 (Version None)
Quarter: 2004Q3

REPORT INFORMATION
  Report Type: 
  Country: None (occurrence: None)
  Receive Date: 20040805
  Receipt Date: 20040803
  Transmission Date: 20050211
  Serious: Yes (Death, Life-Threatening)
  Sender: FDA-Public Use
  Company Number: PHNR2004AU01271

PATIENT
  Age: 79 Year
  Sex: Female

DRUGS (6)
  1. LAMISIL [Suspect]
     Indication: DERMATOPHYTOSIS
  2. KARVEA [Concomitant]
  3. ASTRIX [Concomitant]
  4. METHYLDOPA [Concomitant]
  5. PINDOLOL [Concomitant]
  6. NORMISON [Concomitant]

REACTIONS (2)
  - AGRANULOCYTOSIS [None]
  - SEPTIC SHOCK [None]
